FAERS Safety Report 10948363 (Version 1)
Quarter: 2015Q1

REPORT INFORMATION
  Report Type: Spontaneous
  Country: US (occurrence: None)
  Receive Date: 20150323
  Receipt Date: 20150323
  Transmission Date: 20150721
  Serious: No
  Sender: FDA-Public Use
  Company Number: None

PATIENT
  Sex: Female

DRUGS (1)
  1. DR. SHEFFIELD SCAR GEL (SHEFFIELD PHARMACEUTICALS) [Suspect]
     Active Substance: ALLANTOIN
     Indication: SKIN COSMETIC PROCEDURE
     Route: 061

REACTIONS (1)
  - Skin irritation [None]

NARRATIVE: CASE EVENT DATE: 20120729
